FAERS Safety Report 6946080-0 (Version None)
Quarter: 2010Q3

REPORT INFORMATION
  Report Type: 
  Country: None (occurrence: None)
  Receive Date: 20100827
  Receipt Date: 20100730
  Transmission Date: 20110219
  Serious: Yes (Other)
  Sender: FDA-Public Use
  Company Number: JP-PFIZER INC-2010097197

PATIENT
  Age: 69 Year
  Sex: Female
  Weight: 43.5 kg

DRUGS (12)
  1. ZOLOFT [Suspect]
     Indication: DEPRESSION
     Dosage: 100 MG, 1X/DAY
     Route: 048
  2. ZOLOFT [Suspect]
     Dosage: 25 MG, 1X/DAY
     Route: 048
  3. CELECOX [Suspect]
     Dosage: 100 MG, 2X/DAY
     Route: 048
  4. ARICEPT [Suspect]
     Indication: PRODUCT USED FOR UNKNOWN INDICATION
     Dosage: 10 MG, 1X/DAY
     Route: 048
     Dates: end: 20100609
  5. SEPAZON [Suspect]
     Dosage: 1 MG, 3X/DAY
     Route: 048
     Dates: end: 20100609
  6. SULPIRIDE [Suspect]
     Dosage: 50 MG, 3X/DAY
     Route: 048
     Dates: end: 20100623
  7. DEPAKENE [Suspect]
     Dosage: 200 MG, 3X/DAY
     Dates: end: 20100609
  8. ANAFRANIL [Suspect]
     Dosage: 25 MG, 3X/DAY
     Route: 048
     Dates: end: 20100623
  9. BROTIZOLAM [Suspect]
     Dosage: 0.25 MG, 1X/DAY
     Route: 048
  10. ALENDRONATE SODIUM [Concomitant]
     Dosage: 5 MG, UNK
  11. VALSARTAN [Concomitant]
  12. BESACOLIN [Concomitant]

REACTIONS (5)
  - ANXIETY [None]
  - COGNITIVE DISORDER [None]
  - DIZZINESS [None]
  - GAIT DISTURBANCE [None]
  - PAIN [None]
